FAERS Safety Report 4622462-7 (Version None)
Quarter: 2005Q1

REPORT INFORMATION
  Report Type: 
  Country: None (occurrence: None)
  Receive Date: 20050330
  Receipt Date: 20050320
  Transmission Date: 20050727
  Serious: Yes (Death)
  Sender: FDA-Public Use
  Company Number: 200512552GDDC

PATIENT
  Age: 69 Year
  Sex: Female

DRUGS (6)
  1. LOVENOX [Suspect]
     Indication: ACUTE CORONARY SYNDROME
     Route: 058
     Dates: start: 20050226, end: 20050306
  2. ELISOR [Concomitant]
     Route: 048
  3. CLOPIDOGREL [Concomitant]
     Route: 048
  4. ASPIRIN [Concomitant]
     Route: 048
  5. TENORMIN [Concomitant]
     Route: 048
  6. AMLODIPINE [Concomitant]
     Route: 048

REACTIONS (5)
  - DISSEMINATED INTRAVASCULAR COAGULATION [None]
  - HAEMATOMA [None]
  - HAEMORRHAGE INTRACRANIAL [None]
  - SEPTIC SHOCK [None]
  - SHOCK HAEMORRHAGIC [None]
